FAERS Safety Report 5844000-3 (Version None)
Quarter: 2008Q3

REPORT INFORMATION
  Report Type: 
  Country: None (occurrence: None)
  Receive Date: 20080813
  Receipt Date: 20080806
  Transmission Date: 20090109
  Serious: Yes (Hospitalization)
  Sender: FDA-Public Use
  Company Number: US-PURDUE-USA_2008_0034314

PATIENT
  Sex: Female

DRUGS (1)
  1. DILAUDID-HP [Suspect]
     Indication: PAIN
     Dosage: 6 MG, SEE TEXT
     Route: 030

REACTIONS (3)
  - INJECTION SITE NECROSIS [None]
  - INJECTION SITE SCAB [None]
  - INJECTION SITE ULCER [None]
